FAERS Safety Report 16703826 (Version 2)
Quarter: 2019Q3

REPORT INFORMATION
  Report Type: Report from Study
  Country: DE (occurrence: DE)
  Receive Date: 20190814
  Receipt Date: 20190829
  Transmission Date: 20191004
  Serious: Yes (Other)
  Sender: FDA-Public Use
  Company Number: DE-MYLANLABS-2019M1025413

PATIENT
  Age: 70 Year
  Sex: Male
  Weight: 75 kg

DRUGS (8)
  1. BEVACIZUMAB. [Suspect]
     Active Substance: BEVACIZUMAB
     Indication: METASTATIC RENAL CELL CARCINOMA
     Dosage: UNK(OT)
     Route: 065
     Dates: start: 20100601, end: 20101102
  2. INTERFERON [Suspect]
     Active Substance: INTERFERON
     Indication: METASTATIC RENAL CELL CARCINOMA
     Dosage: UNK(OT)
     Route: 065
     Dates: start: 20100601, end: 20101102
  3. PAZOPANIB [Suspect]
     Active Substance: PAZOPANIB
     Indication: METASTATIC RENAL CELL CARCINOMA
     Dosage: UNK
     Route: 065
     Dates: start: 20120529, end: 20130930
  4. NEXAVAR [Suspect]
     Active Substance: SORAFENIB
     Indication: METASTATIC RENAL CELL CARCINOMA
     Dosage: UNK(OT)
     Route: 065
     Dates: start: 20110412, end: 20110726
  5. INLYTA [Suspect]
     Active Substance: AXITINIB
     Indication: METASTATIC RENAL CELL CARCINOMA
     Dosage: UNK(OT)
     Route: 065
     Dates: start: 2013
  6. SUNITINIB [Suspect]
     Active Substance: SUNITINIB
     Indication: METASTATIC RENAL CELL CARCINOMA
     Dosage: UNK(OT)
     Route: 065
     Dates: start: 20101102, end: 20110404
  7. VOTRIENT [Suspect]
     Active Substance: PAZOPANIB HYDROCHLORIDE
     Indication: METASTATIC RENAL CELL CARCINOMA
     Dosage: UNK
     Route: 065
     Dates: start: 20120529, end: 20130930
  8. EVEROLIMUS. [Suspect]
     Active Substance: EVEROLIMUS
     Indication: METASTATIC RENAL CELL CARCINOMA
     Dosage: UNK(OT)
     Route: 065
     Dates: start: 20110726, end: 20120529

REACTIONS (3)
  - Metastatic renal cell carcinoma [Unknown]
  - Off label use [Unknown]
  - Malignant neoplasm progression [Unknown]
